FAERS Safety Report 23535430 (Version 2)
Quarter: 2024Q1

REPORT INFORMATION
  Report Type: Spontaneous
  Country: US (occurrence: None)
  Receive Date: 20240218
  Receipt Date: 20240313
  Transmission Date: 20240409
  Serious: No
  Sender: FDA-Public Use
  Company Number: 2024A032549

PATIENT
  Age: 64 Year
  Sex: Male

DRUGS (1)
  1. TAGRISSO [Suspect]
     Active Substance: OSIMERTINIB
     Indication: Lung neoplasm malignant
     Route: 048
     Dates: start: 20220101

REACTIONS (6)
  - Flatulence [Unknown]
  - Frequent bowel movements [Unknown]
  - Constipation [Unknown]
  - Pertussis [Unknown]
  - Skin fissures [Unknown]
  - Back pain [Unknown]

NARRATIVE: CASE EVENT DATE: 20220201
